FAERS Safety Report 9798943 (Version 2)
Quarter: 2014Q1

REPORT INFORMATION
  Report Type: Not Available
  Country: FR (occurrence: FR)
  Receive Date: 20140106
  Receipt Date: 20140113
  Transmission Date: 20141002
  Serious: Yes (Hospitalization)
  Sender: FDA-Public Use
  Company Number: FR-NAPPMUNDI-GBR-2013-0016769

PATIENT
  Age: 83 Year
  Sex: Female

DRUGS (10)
  1. OXYCONTIN LP 5 MG, COMPRIME PELLICULE A LIBERATION PROLONGEE [Suspect]
     Indication: PRODUCT USED FOR UNKNOWN INDICATION
     Dosage: 5 MG, BID
     Route: 048
     Dates: end: 20130101
  2. OXYNORM 5 MG, GELULE [Suspect]
     Indication: PRODUCT USED FOR UNKNOWN INDICATION
     Dosage: 5 MG, PRN
     Route: 048
     Dates: end: 20130101
  3. COKENZEN [Suspect]
     Indication: PRODUCT USED FOR UNKNOWN INDICATION
     Dosage: 12.5 MG, UNK
     Route: 048
  4. LIPANTHYL [Suspect]
     Indication: PRODUCT USED FOR UNKNOWN INDICATION
     Dosage: 300 MG, DAILY
     Route: 048
  5. SKENAN [Suspect]
     Indication: PRODUCT USED FOR UNKNOWN INDICATION
     Dosage: 60 MG, BID
     Route: 065
     Dates: start: 20130102, end: 20130103
  6. LYRICA [Suspect]
     Indication: PRODUCT USED FOR UNKNOWN INDICATION
     Dosage: 50 MG, BID
     Route: 065
     Dates: start: 20130102
  7. COUMADINE [Concomitant]
     Dosage: 2 MG, DAILY
     Route: 048
  8. FORLAX                             /00754501/ [Concomitant]
     Dosage: 10 MG, UNK
     Route: 048
  9. UVEDOSE [Concomitant]
     Dosage: 10000 U/L, UNK
     Route: 048
  10. DOLIPRANE (ACETAMINOPHEN) [Concomitant]
     Dosage: 1000 MG, TID
     Route: 048

REACTIONS (10)
  - Fall [Recovered/Resolved]
  - Hypotension [Recovered/Resolved]
  - Confusional state [Recovered/Resolved]
  - Somnolence [Recovered/Resolved]
  - Miosis [Recovered/Resolved]
  - Dehydration [Recovered/Resolved]
  - Intestinal obstruction [Recovered/Resolved]
  - Renal failure acute [Recovered/Resolved]
  - Infection [Recovered/Resolved]
  - Rhabdomyolysis [Recovered/Resolved]
